FAERS Safety Report 4800302-0 (Version None)
Quarter: 2005Q4

REPORT INFORMATION
  Report Type: 
  Country: None (occurrence: None)
  Receive Date: 20051012
  Receipt Date: 20051012
  Transmission Date: 20060501
  Serious: No
  Sender: FDA-Public Use
  Company Number: None

PATIENT
  Sex: Male
  Weight: 58.0604 kg

DRUGS (5)
  1. FORTEO [Suspect]
     Indication: OSTEOPOROSIS
     Dosage: 20 MCG SQ/D
     Route: 058
     Dates: start: 20050101, end: 20050701
  2. FORTEO [Suspect]
     Indication: OSTEOPOROSIS
     Dosage: 20 MCG SQ/D
     Route: 058
     Dates: start: 20050901
  3. PROTONIX [Concomitant]
  4. FLOMAX [Concomitant]
  5. ASPIRIN [Concomitant]

REACTIONS (2)
  - OSTEOARTHRITIS [None]
  - PAIN IN EXTREMITY [None]
